FAERS Safety Report 6646173-1 (Version None)
Quarter: 2010Q1

REPORT INFORMATION
  Report Type: 
  Country: None (occurrence: None)
  Receive Date: 20100322
  Receipt Date: 20100322
  Transmission Date: 20100710
  Serious: Yes (Other)
  Sender: FDA-Public Use
  Company Number: None

PATIENT
  Sex: Female
  Weight: 62.5964 kg

DRUGS (2)
  1. AMIODARONE HCL [Suspect]
     Indication: ATRIAL FIBRILLATION
     Dosage: 400 MG 1/2 TAB 1/2 TAB 2X DAY
     Dates: start: 20060601, end: 20070801
  2. COREG [Suspect]
     Indication: ATRIAL FIBRILLATION
     Dosage: 12.5 MG 1/2 TAB AM
     Dates: start: 20060601

REACTIONS (7)
  - ASTHENIA [None]
  - BALANCE DISORDER [None]
  - DIZZINESS [None]
  - HEADACHE [None]
  - INSOMNIA [None]
  - THERAPEUTIC AGENT TOXICITY [None]
  - VISION BLURRED [None]
